FAERS Safety Report 10960392 (Version 2)
Quarter: 2015Q3

REPORT INFORMATION
  Report Type: Spontaneous
  Country: FR (occurrence: FR)
  Receive Date: 20150327
  Receipt Date: 20150909
  Transmission Date: 20151125
  Serious: Yes (Hospitalization)
  Sender: FDA-Public Use
  Company Number: FR-ROCHE-1556111

PATIENT
  Age: 47 Year
  Sex: Male
  Weight: 110 kg

DRUGS (2)
  1. NIVOLUMAB [Suspect]
     Active Substance: NIVOLUMAB
     Indication: METASTATIC MALIGNANT MELANOMA
     Route: 042
     Dates: start: 20150528, end: 20150611
  2. ZELBORAF [Suspect]
     Active Substance: VEMURAFENIB
     Indication: METASTATIC MALIGNANT MELANOMA
     Route: 048
     Dates: start: 20150314, end: 20150513

REACTIONS (7)
  - Renal failure [Recovered/Resolved]
  - Retinal detachment [Recovering/Resolving]
  - Vogt-Koyanagi-Harada syndrome [Recovering/Resolving]
  - Blood potassium abnormal [Unknown]
  - Uveitis [Recovering/Resolving]
  - Iridocyclitis [Recovering/Resolving]
  - Alopecia areata [Recovering/Resolving]

NARRATIVE: CASE EVENT DATE: 20150321
